FAERS Safety Report 5671619-5 (Version None)
Quarter: 2008Q1

REPORT INFORMATION
  Report Type: 
  Country: None (occurrence: None)
  Receive Date: 20080318
  Receipt Date: 20080305
  Transmission Date: 20080703
  Serious: Yes (Hospitalization)
  Sender: FDA-Public Use
  Company Number: AU-GENENTECH-255786

PATIENT
  Sex: Male

DRUGS (25)
  1. BLINDED APOMAB (PRO95780) [Suspect]
     Indication: NON-SMALL CELL LUNG CANCER
     Dosage: 620 UNK, UNK
     Route: 042
     Dates: start: 20080108
  2. BLINDED BEVACIZUMAB [Suspect]
     Indication: NON-SMALL CELL LUNG CANCER
     Dosage: 620 UNK, UNK
     Route: 042
     Dates: start: 20080108
  3. CARBOPLATIN [Suspect]
     Indication: NON-SMALL CELL LUNG CANCER
     Dosage: 620 UNK, UNK
     Route: 042
     Dates: start: 20080108
  4. BLINDED NO STUDY DRUG ADMINISTERED [Suspect]
     Indication: NON-SMALL CELL LUNG CANCER
     Dosage: 620 UNK, UNK
     Route: 042
     Dates: start: 20080108
  5. PACLITAXEL [Suspect]
     Indication: NON-SMALL CELL LUNG CANCER
     Dosage: 620 UNK, UNK
     Route: 042
     Dates: start: 20080108
  6. BLINDED PLACEBO [Suspect]
     Indication: NON-SMALL CELL LUNG CANCER
     Dosage: 620 UNK, UNK
     Route: 042
     Dates: start: 20080108
  7. BEVACIZUMAB [Suspect]
     Indication: NON-SMALL CELL LUNG CANCER
     Dosage: 930 UNK, UNK
     Route: 042
     Dates: start: 20080108
  8. CARBOPLATIN [Suspect]
     Indication: NON-SMALL CELL LUNG CANCER
     Dosage: 650 UNK, UNK
     Route: 042
     Dates: start: 20080108
  9. PACLITAXEL [Suspect]
     Indication: NON-SMALL CELL LUNG CANCER
     Dosage: 350 UNK, UNK
     Route: 042
     Dates: start: 20080108
  10. AGAROL [Concomitant]
     Indication: DRUG USE FOR UNKNOWN INDICATION
     Dosage: 20 MG, PRN
  11. COLOXYL SENNA [Concomitant]
     Indication: CONSTIPATION
     Dosage: 2 TABLET, BID
     Dates: start: 20080110
  12. DEXAMETHASONE TAB [Concomitant]
     Indication: PREMEDICATION
     Dosage: 20 MG, UNK
     Dates: start: 20080107
  13. DEXAMETHASONE TAB [Concomitant]
     Dosage: 4 MG, UNK
     Dates: start: 20080109
  14. ENDEP [Concomitant]
     Indication: DRUG USE FOR UNKNOWN INDICATION
     Dosage: 10 MG, UNK
  15. ENDONE [Concomitant]
     Indication: PAIN
     Dosage: 5 MG, PRN
     Dates: start: 20080104
  16. KAPANOL [Concomitant]
     Indication: DRUG USE FOR UNKNOWN INDICATION
     Dosage: 30 MG, UNK
  17. GOANNA OIL LINIMENT [Concomitant]
     Indication: PAIN
     Dates: start: 20080101, end: 20080116
  18. LORATADINE [Concomitant]
     Indication: PREMEDICATION
     Dosage: 10 MG, UNK
     Dates: start: 20080108
  19. MAXOLON [Concomitant]
     Indication: DRUG USE FOR UNKNOWN INDICATION
     Dosage: 10 MG, PRN
  20. MOVICOL [Concomitant]
     Indication: CONSTIPATION
     Dosage: UNK, PRN
     Dates: start: 20080107
  21. NEXIUM [Concomitant]
     Indication: DRUG USE FOR UNKNOWN INDICATION
     Dosage: 40 MG, QD
  22. ONDANSETRON [Concomitant]
     Indication: PROPHYLAXIS
     Dosage: 8 MG, UNK
     Dates: start: 20080108
  23. PANADEINE [Concomitant]
     Indication: PAIN
     Dosage: 2 TABLET, QID
     Dates: start: 20080105, end: 20080116
  24. RANITIDINE [Concomitant]
     Indication: PREMEDICATION
     Dosage: 50 MG, UNK
     Route: 042
     Dates: start: 20080108
  25. VOLTAREN [Concomitant]
     Indication: DRUG USE FOR UNKNOWN INDICATION

REACTIONS (1)
  - CONFUSIONAL STATE [None]
